FAERS Safety Report 24312596 (Version 2)
Quarter: 2024Q4

REPORT INFORMATION
  Report Type: Spontaneous
  Country: JP (occurrence: JP)
  Receive Date: 20240912
  Receipt Date: 20241031
  Transmission Date: 20250114
  Serious: No
  Sender: PFIZER
  Company Number: JP-PFIZER INC-202400253402

PATIENT
  Sex: Male

DRUGS (1)
  1. NGENLA [Suspect]
     Active Substance: SOMATROGON-GHLA
     Dosage: UNK

REACTIONS (4)
  - Device leakage [Unknown]
  - Accidental exposure to product [Unknown]
  - Injury associated with device [Recovered/Resolved]
  - Puncture site haemorrhage [Recovered/Resolved]
